FAERS Safety Report 4366036-4 (Version None)
Quarter: 2004Q2

REPORT INFORMATION
  Report Type: 
  Country: None (occurrence: None)
  Receive Date: 20040524
  Receipt Date: 20040210
  Transmission Date: 20050107
  Serious: No
  Sender: FDA-Public Use
  Company Number: SU-2004-002122

PATIENT
  Age: 39 Year
  Sex: Female
  Weight: 125.6464 kg

DRUGS (8)
  1. BENICAR [Suspect]
     Indication: HYPERTENSION
     Dosage: 20 MG QD PO
     Route: 048
     Dates: start: 20030912, end: 20030913
  2. ATROVENT [Concomitant]
  3. ALLEGRA-D [Concomitant]
  4. AVANDIA [Concomitant]
  5. DURAGESIC [Concomitant]
  6. PERCOCET [Concomitant]
  7. TOPAMAX [Concomitant]
  8. ORTHO CYCLEN-28 [Concomitant]

REACTIONS (1)
  - HYPOTENSION [None]
